FAERS Safety Report 9907835 (Version 1)
Quarter: 2014Q1

REPORT INFORMATION
  Report Type: Spontaneous
  Country: US (occurrence: US)
  Receive Date: 20140219
  Receipt Date: 20140219
  Transmission Date: 20141002
  Serious: No
  Sender: FDA-Public Use
  Company Number: US-BIOGENIDEC-2014BI014125

PATIENT
  Age: 45 Year
  Sex: Female
  Weight: 53 kg

DRUGS (19)
  1. TECFIDERA [Suspect]
     Indication: MULTIPLE SCLEROSIS
     Route: 048
     Dates: start: 20140106
  2. TECFIDERA [Suspect]
     Indication: MULTIPLE SCLEROSIS
     Route: 048
     Dates: end: 20140116
  3. TECFIDERA [Suspect]
     Indication: MULTIPLE SCLEROSIS
     Route: 048
     Dates: start: 20140124, end: 20140124
  4. ORENCIA [Concomitant]
  5. BACLOFEN [Concomitant]
     Indication: BREAKTHROUGH PAIN
  6. XANAFLEX [Concomitant]
     Indication: HEADACHE
  7. MS ER [Concomitant]
  8. VALIUM [Concomitant]
  9. MOBIC [Concomitant]
  10. PROVIGIL [Concomitant]
  11. PILOCARPINE [Concomitant]
  12. PREMARIN [Concomitant]
  13. NEXIUM [Concomitant]
  14. CLOBESTASOL PROPIONATE [Concomitant]
     Route: 061
  15. FLONASE [Concomitant]
  16. IMITREX [Concomitant]
     Route: 045
  17. PRIALT PAIN PUMP [Concomitant]
  18. METHOTREXATE [Concomitant]
  19. BOTOX [Concomitant]

REACTIONS (13)
  - Psychosomatic disease [Unknown]
  - Feeling abnormal [Unknown]
  - Balance disorder [Unknown]
  - Hyperacusis [Not Recovered/Not Resolved]
  - Aphagia [Unknown]
  - Insomnia [Unknown]
  - Memory impairment [Unknown]
  - Fear [Unknown]
  - Hallucination, visual [Unknown]
  - Disorientation [Unknown]
  - Pain [Unknown]
  - Abnormal behaviour [Unknown]
  - Extra dose administered [Unknown]
